FAERS Safety Report 12977936 (Version 1)
Quarter: 2016Q4

REPORT INFORMATION
  Report Type: Spontaneous
  Country: US (occurrence: US)
  Receive Date: 20161123
  Receipt Date: 20161123
  Transmission Date: 20170207
  Serious: Yes (Hospitalization)
  Sender: FDA-Public Use
  Company Number: None

PATIENT
  Age: 83 Year
  Sex: Male
  Weight: 76.3 kg

DRUGS (2)
  1. CYCLOBENZAPRINE [Suspect]
     Active Substance: CYCLOBENZAPRINE
     Indication: MUSCLE RELAXANT THERAPY
     Route: 048
     Dates: start: 20160924, end: 20160927
  2. ACETAMINOPHEN/HYDROCODONE [Suspect]
     Active Substance: ACETAMINOPHEN\HYDROCODONE
     Indication: PAIN
     Dosage: HALF TAB PRN PO
     Route: 048
     Dates: start: 20160924, end: 20160927

REACTIONS (8)
  - Neck pain [None]
  - Confusional state [None]
  - Delirium [None]
  - Humerus fracture [None]
  - Mental status changes [None]
  - Muscle spasms [None]
  - Hallucination, visual [None]
  - Dementia [None]

NARRATIVE: CASE EVENT DATE: 20160927
